FAERS Safety Report 10453944 (Version 1)
Quarter: 2014Q3

REPORT INFORMATION
  Report Type: Other
  Country: US (occurrence: US)
  Receive Date: 20140915
  Receipt Date: 20140915
  Transmission Date: 20150326
  Serious: Yes (Hospitalization, Other)
  Sender: FDA-Public Use
  Company Number: US-PURDUE-USA-2014-0117165

PATIENT
  Age: 14 Year
  Sex: Female

DRUGS (1)
  1. NON-PMN OXYCODONE [Suspect]
     Active Substance: OXYCODONE
     Indication: PRODUCT USED FOR UNKNOWN INDICATION
     Dosage: 5 MG, UNK
     Route: 048

REACTIONS (5)
  - Central nervous system lesion [None]
  - Akathisia [Recovered/Resolved]
  - Unresponsive to stimuli [Recovered/Resolved]
  - Toxic encephalopathy [Recovered/Resolved]
  - Ballismus [Recovered/Resolved]
